FAERS Safety Report 7292583-1 (Version None)
Quarter: 2011Q1

REPORT INFORMATION
  Report Type: 
  Country: None (occurrence: None)
  Receive Date: 20110215
  Receipt Date: 20110215
  Transmission Date: 20110831
  Serious: Yes (Other)
  Sender: FDA-Public Use
  Company Number: None

PATIENT
  Age: 58 Year
  Sex: Male
  Weight: 103.8737 kg

DRUGS (2)
  1. MEIJER ALCOHOL PREP PADS MEIJER [Suspect]
     Dosage: 1 PAD 2 DAILY ID
     Route: 023
     Dates: start: 20101215, end: 20110212
  2. BYETTA [Concomitant]

REACTIONS (2)
  - DIARRHOEA [None]
  - NAUSEA [None]
